FAERS Safety Report 6649608-3 (Version None)
Quarter: 2010Q1

REPORT INFORMATION
  Report Type: 
  Country: None (occurrence: None)
  Receive Date: 20100324
  Receipt Date: 20100324
  Transmission Date: 20100710
  Serious: Yes (Hospitalization)
  Sender: FDA-Public Use
  Company Number: None

PATIENT
  Age: 58 Year
  Sex: Male
  Weight: 77.1115 kg

DRUGS (14)
  1. DOCETAXEL [Suspect]
     Indication: SQUAMOUS CELL CARCINOMA
     Dosage: 145MG/IV
     Route: 042
     Dates: start: 20100302
  2. 5FU (FLUOROURACIL) 680MG/M2 [Suspect]
     Indication: SQUAMOUS CELL CARCINOMA
     Dosage: 1312MG/IV
     Route: 042
     Dates: start: 20100302, end: 20100305
  3. CISPLATIN [Suspect]
     Indication: SQUAMOUS CELL CARCINOMA
     Dosage: 193MG/IV
     Route: 042
     Dates: start: 20100302
  4. ATIVAN [Concomitant]
  5. CIPROFLOXACIN [Concomitant]
  6. DECADRON [Concomitant]
  7. FISH OIL CAPSULES [Suspect]
  8. LIDOCAINE HCL VISCOUS [Concomitant]
  9. LIDOCAINE/MAALOX/DIPHENHYDRAMINE [Concomitant]
  10. MULTI-VITAMIN [Concomitant]
  11. ONDANSETRON [Concomitant]
  12. OXYMETAZOLINE HCL [Concomitant]
  13. REGLAN [Concomitant]
  14. ROXICET [Concomitant]

REACTIONS (3)
  - CLOSTRIDIUM DIFFICILE COLITIS [None]
  - FEBRILE NEUTROPENIA [None]
  - HYPOTENSION [None]
